FAERS Safety Report 12170051 (Version 2)
Quarter: 2016Q1

REPORT INFORMATION
  Report Type: Spontaneous
  Country: GT (occurrence: GT)
  Receive Date: 20160310
  Receipt Date: 20160316
  Transmission Date: 20160526
  Serious: Yes (Hospitalization)
  Sender: FDA-Public Use
  Company Number: GT-MALLINCKRODT-T201600793

PATIENT
  Sex: Female

DRUGS (1)
  1. OPTIRAY [Suspect]
     Active Substance: IOVERSOL
     Indication: COMPUTERISED TOMOGRAM ABDOMEN
     Dosage: 125 ML, SINGLE, AT A RATE OF 2.5 ML/SEC
     Route: 042
     Dates: start: 20160125, end: 20160125

REACTIONS (2)
  - Hypoaesthesia [Recovering/Resolving]
  - Urticaria [Recovering/Resolving]
